FAERS Safety Report 23553185 (Version 2)
Quarter: 2024Q1

REPORT INFORMATION
  Report Type: Spontaneous
  Country: US (occurrence: US)
  Receive Date: 20240222
  Receipt Date: 20240305
  Transmission Date: 20240410
  Serious: Yes (Hospitalization)
  Sender: FDA-Public Use
  Company Number: US-GILEAD-2024-0663064

PATIENT

DRUGS (4)
  1. TRODELVY [Suspect]
     Active Substance: SACITUZUMAB GOVITECAN-HZIY
     Indication: Triple negative breast cancer
     Dosage: 1053 MG 2 WEEKS ON, 1 WEEK OFF
     Route: 042
     Dates: start: 20231220
  2. TRODELVY [Suspect]
     Active Substance: SACITUZUMAB GOVITECAN-HZIY
     Dosage: C1D8
     Route: 042
     Dates: start: 20240116
  3. TRODELVY [Suspect]
     Active Substance: SACITUZUMAB GOVITECAN-HZIY
     Dosage: 1053 MG
     Route: 042
     Dates: start: 20231227
  4. AVELUMAB [Concomitant]
     Active Substance: AVELUMAB
     Dosage: 1054 MG, Q2WK
     Route: 042
     Dates: start: 20240110, end: 20240110

REACTIONS (6)
  - Neutrophil count decreased [Recovered/Resolved]
  - Diarrhoea [Unknown]
  - Enteritis [Unknown]
  - Enteritis [Unknown]
  - Hypocalcaemia [Recovered/Resolved]
  - Off label use [Unknown]

NARRATIVE: CASE EVENT DATE: 20231220
